FAERS Safety Report 12775125 (Version 1)
Quarter: 2016Q3

REPORT INFORMATION
  Report Type: Spontaneous
  Country: US (occurrence: US)
  Receive Date: 20160922
  Receipt Date: 20160922
  Transmission Date: 20161109
  Serious: No
  Sender: FDA-Public Use
  Company Number: None

PATIENT
  Age: 7 Year
  Sex: Male
  Weight: 25.2 kg

DRUGS (1)
  1. FABRAZYME [Suspect]
     Active Substance: AGALSIDASE BETA
     Indication: FABRY^S DISEASE
     Dosage: OTHER STRENGTH:;OTHER DOSE:;OTHER FREQUENCY:EVERY OTHER WEEK;OTHER ROUTE:
     Route: 042
     Dates: start: 20160707, end: 20160915

REACTIONS (6)
  - Headache [None]
  - Wheezing [None]
  - Cough [None]
  - Dyspnoea [None]
  - Oxygen saturation decreased [None]
  - Infusion related reaction [None]

NARRATIVE: CASE EVENT DATE: 20160915
